FAERS Safety Report 21796357 (Version 2)
Quarter: 2023Q1

REPORT INFORMATION
  Report Type: Spontaneous
  Country: JP (occurrence: JP)
  Receive Date: 20221229
  Receipt Date: 20230206
  Transmission Date: 20230418
  Serious: Yes (Other)
  Sender: FDA-Public Use
  Company Number: JP-GSKJP-JP2022JPN190668

PATIENT
  Sex: Male

DRUGS (4)
  1. BOTOX [Suspect]
     Active Substance: ONABOTULINUMTOXINA
     Indication: Hypertonic bladder
     Dosage: 100 UNITS, SINGLE
     Dates: start: 20221031, end: 20221031
  2. EVIPROSTAT [CHIMAPHILA UMBELLATA EXTRACT;EQUISETUM ARVENSE EXTRACT;POP [Concomitant]
     Indication: Hypertonic bladder
     Dosage: 3 UNITS, QD
     Route: 048
     Dates: start: 202109
  3. NAFTOPIDIL [Concomitant]
     Active Substance: NAFTOPIDIL
     Indication: Hypertonic bladder
     Dosage: 25 MG, QD
     Route: 048
  4. HERBALS [Concomitant]
     Active Substance: HERBALS
     Indication: Hypertonic bladder
     Dosage: 7.5 G, QD
     Route: 048
     Dates: start: 202110

REACTIONS (1)
  - Urinary retention [Recovering/Resolving]

NARRATIVE: CASE EVENT DATE: 20221102
